FAERS Safety Report 20701950 (Version 1)
Quarter: 2022Q2

REPORT INFORMATION
  Report Type: Spontaneous
  Country: US (occurrence: None)
  Receive Date: 20220411
  Receipt Date: 20220411
  Transmission Date: 20220720
  Serious: Yes (Other)
  Sender: FDA-Public Use
  Company Number: None

PATIENT
  Age: 84 Year
  Sex: Female

DRUGS (1)
  1. HUMIRA [Suspect]
     Active Substance: ADALIMUMAB
     Indication: Crohn^s disease
     Dosage: OTHER FREQUENCY : INJECTED WEEKLY;?
     Route: 058
     Dates: start: 20180822

REACTIONS (3)
  - Pulmonary embolism [None]
  - Cough [None]
  - Abdominal pain upper [None]

NARRATIVE: CASE EVENT DATE: 20220411
